FAERS Safety Report 4466502-7 (Version None)
Quarter: 2004Q3

REPORT INFORMATION
  Report Type: 
  Country: None (occurrence: None)
  Receive Date: 20040930
  Receipt Date: 20040917
  Transmission Date: 20050211
  Serious: Yes (Death)
  Sender: FDA-Public Use
  Company Number: 2004S1000191

PATIENT
  Age: 68 Year
  Sex: Female
  Weight: 62 kg

DRUGS (17)
  1. CUBICIN [Suspect]
     Indication: GLYCOPEPTIDE ANTIBIOTIC RESISTANT ENTEROCOCCAL INFECTION
     Dosage: 375 MG; Q24H; IV
     Route: 042
     Dates: start: 20040806, end: 20040809
  2. CARVEDILOL [Concomitant]
  3. LISINOPRIL [Concomitant]
  4. AMIODARONE HCL [Concomitant]
  5. FUROSEMIDE [Concomitant]
  6. METHYLPREDNISOLONE [Concomitant]
  7. INSULIN [Concomitant]
  8. POTASSIUM CHLORIDE [Concomitant]
  9. HEPARIN [Concomitant]
  10. MEGESTEROL ACETATE` [Concomitant]
  11. PROTONIX [Concomitant]
  12. SENOKOT [Concomitant]
  13. METRONIDAZOLE [Concomitant]
  14. AZTRENONAM [Concomitant]
  15. REGLAN [Concomitant]
  16. PERCOCET [Concomitant]
  17. NOREPINEPHRINE [Concomitant]

REACTIONS (3)
  - BACTERAEMIA [None]
  - CONDITION AGGRAVATED [None]
  - HYPOTENSION [None]
